FAERS Safety Report 13597602 (Version 1)
Quarter: 2017Q2

REPORT INFORMATION
  Report Type: Spontaneous
  Country: US (occurrence: US)
  Receive Date: 20170531
  Receipt Date: 20170531
  Transmission Date: 20170830
  Serious: No
  Sender: FDA-Public Use
  Company Number: US-APOTEX-2017AP012288

PATIENT
  Sex: Male

DRUGS (1)
  1. CLARISPRAY NASAL ALLERGY [Suspect]
     Active Substance: FLUTICASONE PROPIONATE
     Indication: SEASONAL ALLERGY
     Dosage: UNK
     Route: 065

REACTIONS (4)
  - Panic attack [Recovered/Resolved]
  - Haemoptysis [Recovered/Resolved]
  - Dyspnoea [Recovered/Resolved]
  - Epistaxis [Recovered/Resolved]
